FAERS Safety Report 8550334-4 (Version None)
Quarter: 2012Q3

REPORT INFORMATION
  Report Type: 
  Country: None (occurrence: None)
  Receive Date: 20120730
  Receipt Date: 20120725
  Transmission Date: 20120928
  Serious: Yes (Other)
  Sender: FDA-Public Use
  Company Number: US-PFIZER INC-2012180937

PATIENT
  Sex: Female
  Weight: 79.365 kg

DRUGS (18)
  1. ATIVAN [Concomitant]
     Indication: ANXIETY
     Dosage: UNK
  2. PREDNISONE [Concomitant]
     Indication: CENTRAL NERVOUS SYSTEM INFLAMMATION
  3. ATIVAN [Concomitant]
     Indication: PANIC ATTACK
  4. KLONOPIN [Concomitant]
     Indication: ANXIETY
     Dosage: UNK
  5. XANAX [Concomitant]
     Indication: ANXIETY
     Dosage: UNK
  6. PREDNISONE [Concomitant]
  7. KLONOPIN [Concomitant]
     Indication: PANIC ATTACK
  8. LYRICA [Suspect]
     Indication: CAUDA EQUINA SYNDROME
     Dosage: UNK
     Route: 048
     Dates: start: 20070101, end: 20070101
  9. TOPAMAX [Suspect]
     Indication: VULVOVAGINAL BURNING SENSATION
     Dosage: UNK
     Dates: start: 20070101, end: 20070101
  10. TOPAMAX [Suspect]
     Indication: BURNING SENSATION
  11. AMITRIPTYLINE [Concomitant]
     Dosage: UNK
  12. TOPAMAX [Suspect]
     Indication: FEELING HOT
  13. PREDNISONE [Concomitant]
     Indication: RESPIRATORY DISORDER
     Dosage: UNK
     Route: 042
  14. XANAX [Concomitant]
     Indication: PANIC ATTACK
  15. LYRICA [Suspect]
     Dosage: 100 MG, 1X/DAY
     Route: 048
     Dates: start: 20070101
  16. LYRICA [Suspect]
     Dosage: 100 MG, 3X/DAY
     Route: 048
  17. NEURONTIN [Suspect]
     Indication: CAUDA EQUINA SYNDROME
     Dosage: 100 MG, 3X/DAY
     Route: 048
     Dates: start: 20070101, end: 20070101
  18. LEVOTHYROXINE [Concomitant]
     Indication: THYROID DISORDER
     Dosage: UNK

REACTIONS (15)
  - AMNESIA [None]
  - BACK PAIN [None]
  - SUICIDAL IDEATION [None]
  - PAIN IN EXTREMITY [None]
  - DYSPHEMIA [None]
  - BURNING SENSATION [None]
  - ABNORMAL BEHAVIOUR [None]
  - MENTAL IMPAIRMENT [None]
  - VULVOVAGINAL BURNING SENSATION [None]
  - FEELING HOT [None]
  - NEUROPATHY PERIPHERAL [None]
  - PAIN [None]
  - DEPRESSION [None]
  - HOSTILITY [None]
  - GAIT DISTURBANCE [None]
